FAERS Safety Report 4969641-7 (Version None)
Quarter: 2006Q1

REPORT INFORMATION
  Report Type: 
  Country: None (occurrence: None)
  Receive Date: 20060201
  Receipt Date: 20051222
  Transmission Date: 20060701
  Serious: No
  Sender: FDA-Public Use
  Company Number: 2005PV006162

PATIENT
  Age: 44 Year
  Sex: Female
  Weight: 81.6475 kg

DRUGS (5)
  1. BYETTA [Suspect]
     Indication: DIABETES MELLITUS NON-INSULIN-DEPENDENT
     Dosage: SEE IMAGE
     Route: 058
     Dates: start: 20051118, end: 20051217
  2. BYETTA [Suspect]
     Indication: DIABETES MELLITUS NON-INSULIN-DEPENDENT
     Dosage: SEE IMAGE
     Route: 058
     Dates: start: 20051218
  3. GLUCOPHAGE [Concomitant]
  4. GLUCOTROL [Concomitant]
  5. SYNTHROID [Concomitant]

REACTIONS (9)
  - BLOOD GLUCOSE DECREASED [None]
  - DECREASED APPETITE [None]
  - DRUG INEFFECTIVE [None]
  - HAEMATEMESIS [None]
  - INJECTION SITE ERYTHEMA [None]
  - INJECTION SITE PRURITUS [None]
  - NAUSEA [None]
  - TREMOR [None]
  - VOMITING [None]
